FAERS Safety Report 23037668 (Version 3)
Quarter: 2023Q4

REPORT INFORMATION
  Report Type: Spontaneous
  Country: US (occurrence: None)
  Receive Date: 20231006
  Receipt Date: 20231110
  Transmission Date: 20240109
  Serious: Yes (Other)
  Sender: FDA-Public Use
  Company Number: US-ROCHE-3432424

PATIENT
  Sex: Female

DRUGS (2)
  1. ACTEMRA [Suspect]
     Active Substance: TOCILIZUMAB
     Indication: Product used for unknown indication
     Dosage: STRENGTH: 162MG/0.9ML
     Route: 058
  2. ACTEMRA [Suspect]
     Active Substance: TOCILIZUMAB

REACTIONS (10)
  - Product dose omission issue [Unknown]
  - Fall [Unknown]
  - Fatigue [Unknown]
  - Product complaint [Unknown]
  - Drug delivery system malfunction [Unknown]
  - Device malfunction [Unknown]
  - Device malfunction [Unknown]
  - Product complaint [Unknown]
  - Product complaint [Unknown]
  - Product storage error [Unknown]

NARRATIVE: CASE EVENT DATE: 20230928
